FAERS Safety Report 15509099 (Version 1)
Quarter: 2018Q4

REPORT INFORMATION
  Report Type: Spontaneous
  Country: US (occurrence: US)
  Receive Date: 20181016
  Receipt Date: 20181016
  Transmission Date: 20190205
  Serious: No
  Sender: FDA-Public Use
  Company Number: None

PATIENT
  Sex: Female

DRUGS (2)
  1. AMLODOPINE [Suspect]
     Active Substance: AMLODIPINE BESYLATE
  2. AMLODOPINE [Suspect]
     Active Substance: AMLODIPINE BESYLATE

REACTIONS (4)
  - Malaise [None]
  - Fatigue [None]
  - Nausea [None]
  - Vomiting [None]
